FAERS Safety Report 7919179-X (Version None)
Quarter: 2011Q4

REPORT INFORMATION
  Report Type: 
  Country: None (occurrence: None)
  Receive Date: 20111117
  Receipt Date: 20111109
  Transmission Date: 20120403
  Serious: Yes (Hospitalization)
  Sender: FDA-Public Use
  Company Number: US-BIOGENIDEC-2011BI030586

PATIENT
  Age: 47 Year
  Sex: Female

DRUGS (4)
  1. TYSABRI [Suspect]
     Indication: MULTIPLE SCLEROSIS
     Route: 042
     Dates: start: 20090615
  2. LIPITOR [Concomitant]
     Indication: BLOOD CHOLESTEROL INCREASED
  3. DIOVAN HCT [Concomitant]
     Indication: HYPERTENSION
  4. NEXIUM [Concomitant]
     Indication: BARRETT'S OESOPHAGUS

REACTIONS (20)
  - FALL [None]
  - PROCEDURAL HEADACHE [None]
  - ITCHING SCAR [None]
  - PAIN [None]
  - ALOPECIA [None]
  - HALO VISION [None]
  - LOSS OF CONSCIOUSNESS [None]
  - DEPRESSED MOOD [None]
  - HEADACHE [None]
  - OCULAR NEOPLASM [None]
  - PROCEDURAL COMPLICATION [None]
  - DRUG WITHDRAWAL SYNDROME [None]
  - HYPERTENSION [None]
  - MULTIPLE SCLEROSIS RELAPSE [None]
  - COLONIC POLYP [None]
  - EYE SWELLING [None]
  - PHOTOPHOBIA [None]
  - ANAEMIA [None]
  - VISION BLURRED [None]
  - MEMORY IMPAIRMENT [None]
